FAERS Safety Report 11111682 (Version 1)
Quarter: 2015Q2

REPORT INFORMATION
  Report Type: Spontaneous
  Country: US (occurrence: US)
  Receive Date: 20150514
  Receipt Date: 20150514
  Transmission Date: 20150821
  Serious: No
  Sender: FDA-Public Use
  Company Number: US-B.I. PHARMACEUTICALS,INC./RIDGEFIELD-2015-BI-24029BP

PATIENT
  Sex: Female

DRUGS (1)
  1. AGGRENOX [Suspect]
     Active Substance: ASPIRIN\DIPYRIDAMOLE
     Indication: PRODUCT USED FOR UNKNOWN INDICATION
     Dosage: DOSE PER APPLICATION: 25 MG / 200 MG; DAILY DOSE: 50 MG / 400 MG
     Route: 048

REACTIONS (1)
  - Medication error [Unknown]

NARRATIVE: CASE EVENT DATE: 20150502
